FAERS Safety Report 14345347 (Version 1)
Quarter: 2018Q1

REPORT INFORMATION
  Report Type: Spontaneous
  Country: US (occurrence: US)
  Receive Date: 20180103
  Receipt Date: 20180103
  Transmission Date: 20180509
  Serious: Yes (Other)
  Sender: FDA-Public Use
  Company Number: US-BEH-2017086318

PATIENT
  Age: 35 Year
  Sex: Female
  Weight: 90.7 kg

DRUGS (18)
  1. HAEGARDA [Suspect]
     Active Substance: HUMAN C1-ESTERASE INHIBITOR
     Indication: PROPHYLAXIS
     Dosage: UNK
     Route: 058
  2. OXYCODONE [Concomitant]
     Active Substance: OXYCODONE
  3. NORMAL SALINE [Concomitant]
     Active Substance: SODIUM CHLORIDE
  4. BACLOFEN. [Concomitant]
     Active Substance: BACLOFEN
  5. DURAGESIC [Concomitant]
     Active Substance: FENTANYL
  6. FIRAZYR [Concomitant]
     Active Substance: ICATIBANT ACETATE
  7. PLAVIX [Concomitant]
     Active Substance: CLOPIDOGREL BISULFATE
  8. HAEGARDA [Suspect]
     Active Substance: HUMAN C1-ESTERASE INHIBITOR
     Indication: HEREDITARY ANGIOEDEMA
     Dosage: 5000 IU, EVERY 3-4 DAYS
     Route: 058
     Dates: start: 20171010
  9. EPIPEN [Concomitant]
     Active Substance: EPINEPHRINE
  10. KALBITOR [Concomitant]
     Active Substance: ECALLANTIDE
  11. DIPHENHYDRAMINE. [Concomitant]
     Active Substance: DIPHENHYDRAMINE
  12. PROTONIX [Concomitant]
     Active Substance: PANTOPRAZOLE SODIUM
  13. LEXAPRO [Concomitant]
     Active Substance: ESCITALOPRAM OXALATE
  14. METFORMIN [Concomitant]
     Active Substance: METFORMIN HYDROCHLORIDE
  15. LASIX [Concomitant]
     Active Substance: FUROSEMIDE
  16. HAEGARDA [Suspect]
     Active Substance: HUMAN C1-ESTERASE INHIBITOR
     Dosage: UNK
     Route: 058
  17. QUETIAPINE FUMARATE. [Concomitant]
     Active Substance: QUETIAPINE FUMARATE
  18. SPIRONOLACTONE. [Concomitant]
     Active Substance: SPIRONOLACTONE

REACTIONS (2)
  - Hereditary angioedema [Unknown]
  - Road traffic accident [Unknown]

NARRATIVE: CASE EVENT DATE: 20171219
